FAERS Safety Report 7387266-3 (Version None)
Quarter: 2011Q1

REPORT INFORMATION
  Report Type: 
  Country: None (occurrence: None)
  Receive Date: 20110331
  Receipt Date: 20110328
  Transmission Date: 20110831
  Serious: Yes (Hospitalization, Other)
  Sender: FDA-Public Use
  Company Number: IL-PFIZER INC-2011056456

PATIENT
  Age: 60 Year
  Sex: Male

DRUGS (2)
  1. SUTENT [Suspect]
     Indication: PANCREATIC NEUROENDOCRINE TUMOUR
     Dosage: 50 MG, CYCLE 3, 4 WEEKS ON, 2 WEEKS OFF
     Route: 048
  2. SIROLIMUS [Concomitant]

REACTIONS (10)
  - ASTHENIA [None]
  - BLOOD THYROID STIMULATING HORMONE INCREASED [None]
  - RASH [None]
  - DIARRHOEA [None]
  - ABDOMINAL PAIN UPPER [None]
  - RETINAL DETACHMENT [None]
  - VOMITING [None]
  - BLOOD AMYLASE INCREASED [None]
  - PLATELET COUNT DECREASED [None]
  - BLOOD MAGNESIUM DECREASED [None]
